FAERS Safety Report 9236419 (Version 3)
Quarter: 2013Q2

REPORT INFORMATION
  Report Type: Spontaneous
  Country: CN (occurrence: None)
  Receive Date: 20130415
  Receipt Date: 20130603
  Transmission Date: 20140414
  Serious: Yes (Hospitalization)
  Sender: FDA-Public Use
  Company Number: SYM-2013-02568

PATIENT
  Age: 61 Year
  Sex: Male

DRUGS (7)
  1. 5-FU [Suspect]
     Indication: COLORECTAL CANCER METASTATIC
     Route: 040
     Dates: start: 20121229, end: 20121229
  2. IRINOTECAN(IRINOTECAN) (IRINOTECAN) [Suspect]
     Indication: COLORECTAL CANCER METASTATIC
     Route: 042
     Dates: start: 20121229, end: 20121229
  3. LEUCOVORIN [Suspect]
     Indication: COLORECTAL CANCER METASTATIC
     Route: 042
     Dates: start: 20121229, end: 20121229
  4. BLINDED THERAPY [Suspect]
     Indication: COLORECTAL CANCER METASTATIC
     Route: 042
     Dates: start: 20121229, end: 20121229
  5. PALONOSETRON(PALONOSETRON) (PALONOSETRON) [Concomitant]
  6. DEXAMETHASONE(DEXAMETHASONE) (DEXAMETHASONE) [Concomitant]
  7. PROMETHAZINE(PROMETHAZINE) (PROMETHAZINE) [Concomitant]

REACTIONS (5)
  - Cough [None]
  - Sputum discoloured [None]
  - Pneumonia [None]
  - Respiratory tract infection [None]
  - Pleural effusion [None]
